FAERS Safety Report 22834382 (Version 9)
Quarter: 2023Q4

REPORT INFORMATION
  Report Type: Spontaneous
  Country: GB (occurrence: GB)
  Receive Date: 20230817
  Receipt Date: 20231030
  Transmission Date: 20240109
  Serious: Yes (Hospitalization, Other)
  Sender: FDA-Public Use
  Company Number: GB-MYLANLABS-2023M1086481

PATIENT
  Age: 50 Year
  Sex: Male

DRUGS (1)
  1. CLOZARIL [Suspect]
     Active Substance: CLOZAPINE
     Indication: Schizophrenia
     Dosage: UNK
     Route: 048
     Dates: start: 20031115

REACTIONS (14)
  - Hospitalisation [Unknown]
  - Suicidal ideation [Unknown]
  - Leukopenia [Unknown]
  - Neutropenia [Unknown]
  - Blood thyroid stimulating hormone increased [Unknown]
  - Full blood count abnormal [Unknown]
  - Blood prolactin increased [Unknown]
  - Eosinophil count decreased [Recovered/Resolved]
  - Mean platelet volume increased [Unknown]
  - Aggression [Unknown]
  - Agitation [Unknown]
  - Lymphocyte count decreased [Unknown]
  - Neutrophil count decreased [Not Recovered/Not Resolved]
  - White blood cell count decreased [Recovered/Resolved]

NARRATIVE: CASE EVENT DATE: 20230815
